FAERS Safety Report 4720863-X (Version None)
Quarter: 2005Q3

REPORT INFORMATION
  Report Type: 
  Country: None (occurrence: None)
  Receive Date: 20050720
  Receipt Date: 20050708
  Transmission Date: 20060218
  Serious: Yes (Hospitalization, Other)
  Sender: FDA-Public Use
  Company Number: 2005099118

PATIENT
  Age: 63 Year
  Sex: Male

DRUGS (9)
  1. ATORVASTATIN CALCIUM [Suspect]
     Indication: ILL-DEFINED DISORDER
     Dosage: 40 MG (1 D), ORAL
     Route: 048
     Dates: end: 20050527
  2. URAPIDIL (URAPIDIL) [Concomitant]
  3. PERINDOPRIL (PERINDOPRIL) [Concomitant]
  4. GLIMEPIRIDE [Concomitant]
  5. BISOPROLOL FUMARATE/HYDROCHLOROTHIAZIDE (BISOPROLOL FUMARATE, HYDROCHL [Concomitant]
  6. CLOPIDOGREL BISULFATE [Concomitant]
  7. ESOMEPRAZOLE MAGNESIUM (ESOMEPRAZOLE MAGNESIUM) [Concomitant]
  8. TAMSULOSIN HYDROCHLORIDE (TAMSULOSIN HYDROCHLORIDE) [Concomitant]
  9. DILTIAZEM HYDROCHLORIDE [Concomitant]

REACTIONS (11)
  - ASCITES [None]
  - ATRIOVENTRICULAR BLOCK [None]
  - DIALYSIS [None]
  - HEPATIC CIRRHOSIS [None]
  - HEPATIC FAILURE [None]
  - HYPERKALAEMIA [None]
  - MALAISE [None]
  - MYALGIA [None]
  - OEDEMA [None]
  - RENAL FAILURE ACUTE [None]
  - RHABDOMYOLYSIS [None]
